FAERS Safety Report 12805526 (Version 3)
Quarter: 2017Q1

REPORT INFORMATION
  Report Type: Spontaneous
  Country: US (occurrence: US)
  Receive Date: 20161004
  Receipt Date: 20170210
  Transmission Date: 20170428
  Serious: Yes (Hospitalization, Other)
  Sender: FDA-Public Use
  Company Number: US-JNJFOC-20160922773

PATIENT
  Age: 66 Year
  Sex: Male
  Weight: 110.68 kg

DRUGS (3)
  1. NEOSPORIN [Suspect]
     Active Substance: BACITRACIN ZINC\NEOMYCIN SULFATE\POLYMYXIN B SULFATE
     Indication: ERYTHEMA
     Dosage: FINGER TIP AMOUNT ONE TIME
     Route: 061
     Dates: start: 20160902, end: 20160902
  2. BANDAGE [Concomitant]
     Active Substance: BENZALKONIUM CHLORIDE
     Indication: PROPHYLAXIS
     Dosage: 2 DAYS
     Route: 065
     Dates: start: 20160902, end: 201609
  3. NEOSPORIN [Suspect]
     Active Substance: BACITRACIN ZINC\NEOMYCIN SULFATE\POLYMYXIN B SULFATE
     Indication: SKIN IRRITATION
     Dosage: FINGER TIP AMOUNT ONE TIME
     Route: 061
     Dates: start: 20160902, end: 20160902

REACTIONS (4)
  - Diabetic foot [Recovered/Resolved]
  - Cellulitis [Recovered/Resolved]
  - Application site erosion [Recovered/Resolved]
  - Osteomyelitis bacterial [Recovered/Resolved]

NARRATIVE: CASE EVENT DATE: 2016
